FAERS Safety Report 11699760 (Version 1)
Quarter: 2015Q4

REPORT INFORMATION
  Report Type: Spontaneous
  Country: DE (occurrence: DE)
  Receive Date: 20151105
  Receipt Date: 20151105
  Transmission Date: 20160304
  Serious: Yes (Hospitalization)
  Sender: FDA-Public Use
  Company Number: DE-AXELLIA-000870

PATIENT
  Age: 53 Year
  Sex: Male

DRUGS (2)
  1. PIPERACILLIN AND TAZOBACTAM [Concomitant]
     Active Substance: PIPERACILLIN SODIUM\TAZOBACTAM SODIUM
     Indication: KLEBSIELLA TEST POSITIVE
     Dates: start: 201509
  2. VANCOMYCIN [Suspect]
     Active Substance: VANCOMYCIN
     Indication: BLOOD CULTURE POSITIVE
     Dosage: 2 G EVERY DAY
     Route: 042
     Dates: start: 20150924, end: 20151002

REACTIONS (1)
  - Acute kidney injury [Recovering/Resolving]

NARRATIVE: CASE EVENT DATE: 20151003
